FAERS Safety Report 4290953-7 (Version None)
Quarter: 2004Q1

REPORT INFORMATION
  Report Type: 
  Country: None (occurrence: None)
  Receive Date: 20040211
  Receipt Date: 20031017
  Transmission Date: 20041129
  Serious: No
  Sender: FDA-Public Use
  Company Number: US-GLAXOSMITHKLINE-A0430703A

PATIENT
  Age: 17 Year
  Sex: Male

DRUGS (4)
  1. PAXIL [Suspect]
     Indication: OBSESSIVE-COMPULSIVE DISORDER
     Dosage: 20MG PER DAY
     Route: 048
  2. DEPAKOTE [Concomitant]
  3. RISPERDAL [Concomitant]
  4. STRATTERA [Concomitant]

REACTIONS (1)
  - MEMORY IMPAIRMENT [None]
